FAERS Safety Report 9549325 (Version 1)
Quarter: 2013Q3

REPORT INFORMATION
  Report Type: Spontaneous
  Country: US (occurrence: US)
  Receive Date: 20130924
  Receipt Date: 20130924
  Transmission Date: 20140515
  Serious: Yes (Hospitalization, Other)
  Sender: FDA-Public Use
  Company Number: US-PFIZER INC-2013272627

PATIENT
  Age: 52 Year
  Sex: Female
  Weight: 71.66 kg

DRUGS (13)
  1. PROTONIX [Suspect]
     Indication: GASTROOESOPHAGEAL REFLUX DISEASE
     Dosage: 40 MG, 1X/DAY
     Route: 048
  2. LISINOPRIL [Concomitant]
     Dosage: UNK
  3. IPRATROPIUM [Concomitant]
     Dosage: UNK
  4. METFORMIN [Concomitant]
     Dosage: UNK
  5. HUMALOG MIX [Concomitant]
     Dosage: UNK
  6. METOPROLOL [Concomitant]
     Dosage: UNK
  7. PROVENTIL [Concomitant]
     Dosage: UNK
  8. CITALOPRAM [Concomitant]
     Dosage: UNK
  9. PREDNISONE [Concomitant]
     Dosage: UNK
  10. LORTAB [Concomitant]
     Dosage: UNK
  11. XANAX [Concomitant]
     Dosage: UNK
  12. OXYGEN [Concomitant]
     Dosage: 4 UNITS, UNK
  13. LANTUS [Concomitant]

REACTIONS (4)
  - Pneumonia [Not Recovered/Not Resolved]
  - Lung infection [Not Recovered/Not Resolved]
  - Urinary tract infection [Not Recovered/Not Resolved]
  - Nasopharyngitis [Not Recovered/Not Resolved]
